FAERS Safety Report 24891243 (Version 3)
Quarter: 2025Q1

REPORT INFORMATION
  Report Type: Spontaneous
  Country: US (occurrence: US)
  Receive Date: 20250127
  Receipt Date: 20250307
  Transmission Date: 20250409
  Serious: No
  Sender: SANOFI AVENTIS
  Company Number: US-SA-2025SA023374

PATIENT
  Age: 65 Year
  Sex: Female
  Weight: 55.34 kg

DRUGS (10)
  1. DUPIXENT [Suspect]
     Active Substance: DUPILUMAB
     Indication: Dermatitis atopic
     Route: 058
     Dates: start: 20250114, end: 20250114
  2. DUPIXENT [Suspect]
     Active Substance: DUPILUMAB
     Dosage: 300 MG, QOW
     Route: 058
     Dates: start: 202501
  3. VITAMINS [Concomitant]
     Active Substance: VITAMINS
  4. IRON [Concomitant]
     Active Substance: IRON
  5. DIETARY SUPPLEMENT\HERBALS\MILK THISTLE [Concomitant]
     Active Substance: MILK THISTLE
  6. FISH OIL [Concomitant]
     Active Substance: FISH OIL
  7. VITAMIN D [Concomitant]
     Active Substance: VITAMIN D NOS
  8. OLOPATADINE HYDROCHLORIDE [Concomitant]
     Active Substance: OLOPATADINE HYDROCHLORIDE
  9. TACROLIMUS [Concomitant]
     Active Substance: TACROLIMUS
  10. VITAMIN A [Concomitant]
     Active Substance: VITAMIN A

REACTIONS (6)
  - Contusion [Recovered/Resolved]
  - Weight increased [Unknown]
  - Dry skin [Unknown]
  - Pruritus [Recovered/Resolved]
  - Rash [Unknown]
  - Arthralgia [Recovered/Resolved]

NARRATIVE: CASE EVENT DATE: 20250101
